FAERS Safety Report 25842176 (Version 1)
Quarter: 2025Q3

REPORT INFORMATION
  Report Type: Report from Study
  Country: US (occurrence: US)
  Receive Date: 20250924
  Receipt Date: 20250924
  Transmission Date: 20251021
  Serious: Yes (Disabling)
  Sender: UCB
  Company Number: US-UCBSA-2025040772

PATIENT
  Sex: Female

DRUGS (3)
  1. BIMEKIZUMAB [Suspect]
     Active Substance: BIMEKIZUMAB
     Indication: Psoriatic arthropathy
     Dosage: 160 MILLIGRAM, EV 4 WEEKS
     Route: 058
     Dates: start: 20250416
  2. BIMEKIZUMAB [Suspect]
     Active Substance: BIMEKIZUMAB
     Indication: Ankylosing spondylitis
  3. MOUNJARO [Concomitant]
     Active Substance: TIRZEPATIDE
     Indication: Product used for unknown indication

REACTIONS (10)
  - Cataract [Not Recovered/Not Resolved]
  - Oral candidiasis [Recovered/Resolved]
  - Skin wrinkling [Recovered/Resolved]
  - Dry skin [Recovered/Resolved]
  - Meralgia paraesthetica [Not Recovered/Not Resolved]
  - Candida infection [Recovered/Resolved]
  - Fungal infection [Recovered/Resolved]
  - Skin exfoliation [Not Recovered/Not Resolved]
  - Feeling abnormal [Not Recovered/Not Resolved]
  - Therapeutic product effect incomplete [Unknown]

NARRATIVE: CASE EVENT DATE: 20250101
